FAERS Safety Report 6669750-0 (Version None)
Quarter: 2010Q2

REPORT INFORMATION
  Report Type: 
  Country: None (occurrence: None)
  Receive Date: 20100402
  Receipt Date: 20100319
  Transmission Date: 20101027
  Serious: Yes (Death)
  Sender: FDA-Public Use
  Company Number: 009227

PATIENT
  Age: 2 Year
  Sex: Male

DRUGS (2)
  1. BUSULFEX [Suspect]
     Indication: STEM CELL TRANSPLANT
     Dosage: INTRAVENOUS
     Route: 042
  2. ENDOXAN NET (CYCLOPHOSPHAMIDE) [Concomitant]

REACTIONS (6)
  - ASCITES [None]
  - CELL DEATH [None]
  - GENERAL PHYSICAL HEALTH DETERIORATION [None]
  - HEPATOMEGALY [None]
  - PERIORBITAL HAEMATOMA [None]
  - VENOOCCLUSIVE DISEASE [None]
